FAERS Safety Report 5059746-7 (Version None)
Quarter: 2006Q3

REPORT INFORMATION
  Report Type: 
  Country: None (occurrence: None)
  Receive Date: 20060724
  Receipt Date: 20060718
  Transmission Date: 20061208
  Serious: Yes (Life-Threatening, Hospitalization)
  Sender: FDA-Public Use
  Company Number: BR-BRISTOL-MYERS SQUIBB COMPANY-13449939

PATIENT
  Age: 71 Year
  Sex: Female

DRUGS (4)
  1. ERBITUX [Suspect]
     Indication: COLORECTAL CANCER METASTATIC
     Dosage: 1ST DOSE: 18JUL05
     Route: 041
     Dates: start: 20050920, end: 20050920
  2. IRINOTECAN [Suspect]
     Indication: COLORECTAL CANCER METASTATIC
     Dosage: 1ST DOSE: 18JUL05
     Route: 042
     Dates: start: 20050920, end: 20050920
  3. FOLINIC ACID [Suspect]
     Indication: COLORECTAL CANCER METASTATIC
     Dosage: 1ST DOSE: 18JUL05
     Route: 042
     Dates: start: 20050920, end: 20050920
  4. FLUOROURACIL [Suspect]
     Indication: COLORECTAL CANCER METASTATIC
     Dosage: 1ST DOSE: 18JUL05
     Route: 042
     Dates: start: 20050920, end: 20050920

REACTIONS (5)
  - FEBRILE NEUTROPENIA [None]
  - METASTASES TO LIVER [None]
  - NEUTROPENIA [None]
  - PYREXIA [None]
  - RESPIRATORY TRACT INFECTION [None]
